FAERS Safety Report 9424226 (Version 1)
Quarter: 2013Q3

REPORT INFORMATION
  Report Type: Spontaneous
  Country: BR (occurrence: BR)
  Receive Date: 20130729
  Receipt Date: 20130729
  Transmission Date: 20140515
  Serious: Yes (Other)
  Sender: FDA-Public Use
  Company Number: BR-AMGEN-BRASP2013052517

PATIENT
  Age: 74 Year
  Sex: Male
  Weight: 58 kg

DRUGS (10)
  1. ENBREL [Suspect]
     Indication: RHEUMATOID ARTHRITIS
     Dosage: 50 MG, ONCE WEEKLY
     Route: 058
     Dates: end: 201303
  2. ENALAPRIL [Concomitant]
     Indication: HYPERTENSION
     Dosage: 1 TABLET OF STRENGTH 20 MG, DAILY
  3. BETALOR [Concomitant]
     Dosage: UNK
  4. ATORVASTATIN [Concomitant]
     Dosage: UNK
  5. HYDROXYCHLOROQUINE [Concomitant]
     Dosage: UNK
  6. LEFLUNOMIDE [Concomitant]
     Dosage: UNK
  7. FOLIC ACID [Concomitant]
     Dosage: UNK
  8. SOMALGIN [Concomitant]
     Dosage: UNK
  9. METHOTREXATE [Concomitant]
     Dosage: UNK
  10. DUOMO [Concomitant]
     Dosage: UNK

REACTIONS (3)
  - Ischaemic cerebral infarction [Unknown]
  - Carotid artery occlusion [Unknown]
  - Hypersensitivity [Unknown]
